FAERS Safety Report 9581466 (Version 2)
Quarter: 2013Q4

REPORT INFORMATION
  Report Type: Report from Study
  Country: JP (occurrence: JP)
  Receive Date: 20131002
  Receipt Date: 20131002
  Transmission Date: 20140711
  Serious: Yes (Other)
  Sender: FDA-Public Use
  Company Number: PHHY2011JP87247

PATIENT
  Age: 23 Year
  Sex: Male
  Weight: 69 kg

DRUGS (48)
  1. LEPONEX / CLOZARIL [Suspect]
     Indication: SCHIZOPHRENIA, PARANOID TYPE
     Dosage: 12.5 MG, QD
     Route: 048
     Dates: start: 20100825, end: 20100825
  2. LEPONEX / CLOZARIL [Suspect]
     Dosage: 25 MG, QD
     Route: 048
     Dates: start: 20100826, end: 20100828
  3. LEPONEX / CLOZARIL [Suspect]
     Dosage: 50 MG, QD
     Route: 048
     Dates: start: 20100829, end: 20100831
  4. LEPONEX / CLOZARIL [Suspect]
     Dosage: 75 MG, QD
     Route: 048
     Dates: start: 20100901, end: 20100903
  5. LEPONEX / CLOZARIL [Suspect]
     Dosage: 100 MG, QD
     Route: 048
     Dates: start: 20100904, end: 20100906
  6. LEPONEX / CLOZARIL [Suspect]
     Dosage: 125 MG, QD
     Route: 048
     Dates: start: 20100907, end: 20100909
  7. LEPONEX / CLOZARIL [Suspect]
     Dosage: 150 MG, QD
     Route: 048
     Dates: start: 20100910, end: 20100911
  8. LEPONEX / CLOZARIL [Suspect]
     Dosage: 175 MG, QD
     Route: 048
     Dates: start: 20100912, end: 20100916
  9. LEPONEX / CLOZARIL [Suspect]
     Dosage: 200 MG, QD
     Route: 048
     Dates: start: 20100917, end: 20100920
  10. LEPONEX / CLOZARIL [Suspect]
     Dosage: 225 MG, QD
     Route: 048
     Dates: start: 20100921, end: 20100924
  11. LEPONEX / CLOZARIL [Suspect]
     Dosage: 250 MG, QD
     Route: 048
     Dates: start: 20100925, end: 20100928
  12. LEPONEX / CLOZARIL [Suspect]
     Dosage: 275 MG, QD
     Route: 048
     Dates: start: 20100929, end: 20101002
  13. LEPONEX / CLOZARIL [Suspect]
     Dosage: 300 MG, QD
     Route: 048
     Dates: start: 20101003, end: 20101006
  14. LEPONEX / CLOZARIL [Suspect]
     Dosage: 325 MG, QD
     Route: 048
     Dates: start: 20101007, end: 20101010
  15. LEPONEX / CLOZARIL [Suspect]
     Dosage: 350 MG, QD
     Route: 048
     Dates: start: 20101011, end: 20101014
  16. LEPONEX / CLOZARIL [Suspect]
     Dosage: 375 MG, QD
     Route: 048
     Dates: start: 20101015, end: 20101019
  17. LEPONEX / CLOZARIL [Suspect]
     Dosage: 400 MG, QD
     Route: 048
     Dates: start: 20101020, end: 20101023
  18. LEPONEX / CLOZARIL [Suspect]
     Dosage: 425 MG, QD
     Route: 048
     Dates: start: 20101024, end: 20101027
  19. LEPONEX / CLOZARIL [Suspect]
     Dosage: 450 MG, QD
     Route: 048
     Dates: start: 20101028, end: 20101221
  20. LEPONEX / CLOZARIL [Suspect]
     Dosage: 475 MG, QD
     Route: 048
     Dates: start: 20101222, end: 20110125
  21. LEPONEX / CLOZARIL [Suspect]
     Dosage: 500 MG, QD
     Route: 048
     Dates: start: 20110126, end: 20110201
  22. LEPONEX / CLOZARIL [Suspect]
     Dosage: 525 MG, QD
     Route: 048
     Dates: start: 20110202, end: 20110208
  23. LEPONEX / CLOZARIL [Suspect]
     Dosage: 550 MG, QD
     Route: 048
     Dates: start: 20110209, end: 20110215
  24. LEPONEX / CLOZARIL [Suspect]
     Dosage: 600 MG, QD
     Route: 048
     Dates: start: 20110216, end: 20110510
  25. LEPONEX / CLOZARIL [Suspect]
     Dosage: 500 MG, QD
     Route: 048
     Dates: start: 20110511, end: 20110705
  26. LEPONEX / CLOZARIL [Suspect]
     Dosage: 450 MG, QD
     Route: 048
     Dates: start: 20110706, end: 20110719
  27. LEPONEX / CLOZARIL [Suspect]
     Dosage: 400 MG, QD
     Route: 048
     Dates: start: 20110720, end: 20110816
  28. LEPONEX / CLOZARIL [Suspect]
     Dosage: 350 MG, QD
     Route: 048
     Dates: start: 20110817, end: 20110830
  29. LEPONEX / CLOZARIL [Suspect]
     Dosage: 300 MG, QD
     Dates: start: 20110831, end: 20110927
  30. LEPONEX / CLOZARIL [Suspect]
     Dosage: 275 MG, QD
     Dates: start: 20110928, end: 20111025
  31. LEPONEX / CLOZARIL [Suspect]
     Dosage: 250 MG, QD
     Dates: start: 20111026, end: 20111115
  32. LEPONEX / CLOZARIL [Suspect]
     Dosage: 225 MG, QD
     Dates: start: 20111116, end: 20111213
  33. LEPONEX / CLOZARIL [Suspect]
     Dosage: 200 MG, QD
     Dates: start: 20111214, end: 20120403
  34. LEPONEX / CLOZARIL [Suspect]
     Dosage: 225 MG, QD
     Dates: start: 20120404, end: 20120417
  35. LEPONEX / CLOZARIL [Suspect]
     Dosage: 250 MG, QD
     Dates: start: 20120418, end: 20120501
  36. LEPONEX / CLOZARIL [Suspect]
     Dosage: 275 MG, QD
     Dates: start: 20120502, end: 20120529
  37. LEPONEX / CLOZARIL [Suspect]
     Dosage: 300 MG, QD
     Dates: start: 20120530, end: 20120612
  38. LEPONEX / CLOZARIL [Suspect]
     Dosage: 325 MG, QD
     Dates: start: 20120613, end: 20120626
  39. LEPONEX / CLOZARIL [Suspect]
     Dosage: 350 MG, QD
     Dates: start: 20120627, end: 20120709
  40. LEPONEX / CLOZARIL [Suspect]
     Dosage: 375 MG, QD
     Dates: start: 20120710, end: 20120723
  41. LEPONEX / CLOZARIL [Suspect]
     Dosage: 400 MG, QD
     Dates: start: 20120724, end: 20120806
  42. LEPONEX / CLOZARIL [Suspect]
     Dosage: 425 MG, QD
     Dates: start: 20120807, end: 20120820
  43. LEPONEX / CLOZARIL [Suspect]
     Dosage: 450 MG, QD
     Dates: start: 20120821
  44. NICOTINAMIDE [Concomitant]
     Dosage: 1000 MG, UNK
     Route: 048
     Dates: start: 20100825
  45. NICOTINAMIDE [Concomitant]
     Dosage: 4000 MG, UNK
     Route: 048
  46. TASMOLIN [Concomitant]
     Indication: SCHIZOPHRENIA, PARANOID TYPE
     Dosage: 3 MG, UNK
     Route: 048
     Dates: start: 20100825, end: 20110125
  47. EPADEL [Concomitant]
     Dosage: 2700 MG, UNK
     Route: 048
     Dates: start: 20100929
  48. VITAMEDIN [Concomitant]
     Dosage: 50 MG, UNK
     Route: 048

REACTIONS (1)
  - Parkinsonism [Recovered/Resolved]
